FAERS Safety Report 6442500-9 (Version None)
Quarter: 2009Q4

REPORT INFORMATION
  Report Type: 
  Country: None (occurrence: None)
  Receive Date: 20091112
  Receipt Date: 20091026
  Transmission Date: 20100525
  Serious: Yes (Hospitalization)
  Sender: FDA-Public Use
  Company Number: WAES 0708FRA00022

PATIENT
  Age: 41 Year
  Sex: Male

DRUGS (15)
  1. TAB MK-0518 400 MG/BID [Suspect]
     Indication: HIV INFECTION
     Dosage: 400 MG/BID PO
     Route: 048
     Dates: start: 20070724, end: 20070809
  2. TAB MK-0518 400 MG/BID [Suspect]
     Indication: HIV INFECTION
     Dosage: 400 MG/BID PO
     Route: 048
     Dates: start: 20070903, end: 20070920
  3. TAB DARUNAVIR 600 MG/BID [Suspect]
     Indication: HIV INFECTION
     Dosage: 600 MG/BID PO
     Route: 048
     Dates: start: 20070724, end: 20070909
  4. TAB DARUNAVIR 600 MG/BID [Suspect]
     Indication: HIV INFECTION
     Dosage: 600 MG/BID PO
     Route: 048
     Dates: start: 20080107
  5. TAB DARUNAVIR 600 MG/BID [Suspect]
     Indication: HIV INFECTION
     Dosage: 600 MG/BID PO
     Route: 048
     Dates: start: 20080107
  6. TAB ETRAVIRINE 200 MG/BID PO [Suspect]
     Dosage: SEE IMAGE
     Route: 048
     Dates: start: 20070724, end: 20070909
  7. TAB ETRAVIRINE 200 MG/BID PO [Suspect]
     Dosage: SEE IMAGE
     Route: 048
     Dates: start: 20080331
  8. RITONAVIR [Suspect]
     Indication: HIV INFECTION
     Dosage: 100 MG/BID PO
     Route: 048
     Dates: start: 20011213, end: 20070808
  9. ABACAVIR SULFATE [Concomitant]
  10. ABACAVIR SULFATE/LAMIVUDINE [Concomitant]
  11. EMTRICITABINE (+) TENOFOVIR DISOPROXIL F [Concomitant]
  12. ENFUVIRTIDE [Concomitant]
  13. HYDROXYZINE [Concomitant]
  14. TENOFOVIR DISOPROXIL FUMARATE [Concomitant]
  15. ZOLPIDEM TARTRATE [Concomitant]

REACTIONS (2)
  - PYREXIA [None]
  - RASH MACULO-PAPULAR [None]
